FAERS Safety Report 8501000-2 (Version None)
Quarter: 2012Q2

REPORT INFORMATION
  Report Type: 
  Country: None (occurrence: None)
  Receive Date: 20120629
  Receipt Date: 20120620
  Transmission Date: 20120825
  Serious: Yes (Other)
  Sender: FDA-Public Use
  Company Number: ADR-2012-01143

PATIENT
  Sex: Female

DRUGS (3)
  1. LIORESAL [Suspect]
     Indication: SPINAL CORD DISORDER
     Dosage: 360.2 MCG/DAY
  2. LIORESAL [Suspect]
     Indication: MUSCLE SPASTICITY
     Dosage: 360.2 MCG/DAY
  3. LIORESAL [Suspect]
     Indication: SPINAL CORD INJURY
     Dosage: 360.2 MCG/DAY

REACTIONS (10)
  - DEVICE CONNECTION ISSUE [None]
  - FOOT DEFORMITY [None]
  - CONDITION AGGRAVATED [None]
  - ABDOMINAL PAIN UPPER [None]
  - MUSCLE SPASTICITY [None]
  - BALANCE DISORDER [None]
  - INCORRECT DOSE ADMINISTERED BY DEVICE [None]
  - HAND DEFORMITY [None]
  - DEVICE BREAKAGE [None]
  - IMPLANT SITE INFECTION [None]
